FAERS Safety Report 12806049 (Version 1)
Quarter: 2016Q4

REPORT INFORMATION
  Report Type: Report from Study
  Country: CO (occurrence: CO)
  Receive Date: 20161004
  Receipt Date: 20161004
  Transmission Date: 20170207
  Serious: Yes (Hospitalization)
  Sender: FDA-Public Use
  Company Number: CO-ASTELLAS-2016US038535

PATIENT
  Age: 18 Year
  Sex: Female
  Weight: 41 kg

DRUGS (1)
  1. TACROLIMUS. [Suspect]
     Active Substance: TACROLIMUS
     Indication: RENAL TRANSPLANT
     Route: 048
     Dates: start: 20100601

REACTIONS (1)
  - Laryngeal stenosis [Recovering/Resolving]

NARRATIVE: CASE EVENT DATE: 20160720
